FAERS Safety Report 20378378 (Version 2)
Quarter: 2022Q3

REPORT INFORMATION
  Report Type: Spontaneous
  Country: None (occurrence: KR)
  Receive Date: 20220126
  Receipt Date: 20220915
  Transmission Date: 20221027
  Serious: Yes (Life-Threatening)
  Sender: FDA-Public Use
  Company Number: KR-Acacia Pharma Limited-2124291

PATIENT
  Age: 23 Year
  Sex: Female
  Weight: 65.7 kg

DRUGS (1)
  1. BYFAVO [Suspect]
     Active Substance: REMIMAZOLAM BESYLATE
     Indication: Induction of anaesthesia
     Route: 042
     Dates: start: 20220110, end: 20220110

REACTIONS (1)
  - Anaphylactic reaction [Recovered/Resolved]

NARRATIVE: CASE EVENT DATE: 20220110
